FAERS Safety Report 21365534 (Version 1)
Quarter: 2022Q3

REPORT INFORMATION
  Report Type: Spontaneous
  Country: US (occurrence: None)
  Receive Date: 20220922
  Receipt Date: 20220922
  Transmission Date: 20221027
  Serious: No
  Sender: FDA-Public Use
  Company Number: None

PATIENT
  Age: 61 Year
  Sex: Female
  Weight: 76.05 kg

DRUGS (1)
  1. ATOVAQUONE AND PROGUANIL HYDROCHLORIDE [Suspect]
     Active Substance: ATOVAQUONE\PROGUANIL HYDROCHLORIDE
     Indication: Malaria prophylaxis
     Dosage: OTHER QUANTITY : 30 TABLET(S);?FREQUENCY : DAILY;?
     Route: 048
     Dates: start: 20220826, end: 20220914

REACTIONS (4)
  - Decreased appetite [None]
  - Diarrhoea [None]
  - Nausea [None]
  - Product dose omission in error [None]

NARRATIVE: CASE EVENT DATE: 20220903
